FAERS Safety Report 8277610-7 (Version None)
Quarter: 2012Q1

REPORT INFORMATION
  Report Type: 
  Country: None (occurrence: None)
  Receive Date: 20120312
  Receipt Date: 20120117
  Transmission Date: 20120608
  Serious: No
  Sender: FDA-Public Use
  Company Number: 2012SP003542

PATIENT
  Sex: Male

DRUGS (1)
  1. SAPHRIS [Suspect]
     Indication: AFFECTIVE DISORDER
     Dosage: 5 MG;BID;PO ; 10 MG;BID;PO ; 5 MG;BID;PO
     Route: 048

REACTIONS (2)
  - AKATHISIA [None]
  - INCORRECT ROUTE OF DRUG ADMINISTRATION [None]
